FAERS Safety Report 25136047 (Version 1)
Quarter: 2025Q1

REPORT INFORMATION
  Report Type: Spontaneous
  Country: US (occurrence: None)
  Receive Date: 20250328
  Receipt Date: 20250328
  Transmission Date: 20250409
  Serious: No
  Sender: FDA-CTU
  Company Number: None

PATIENT

DRUGS (1)
  1. CAPECITABINE [Suspect]
     Active Substance: CAPECITABINE

REACTIONS (9)
  - Arthralgia [None]
  - Localised infection [None]
  - Dyspnoea [None]
  - Abdominal discomfort [None]
  - Neuropathy peripheral [None]
  - Fatigue [None]
  - Decreased appetite [None]
  - Constipation [None]
  - Diarrhoea [None]
